FAERS Safety Report 4374395-1 (Version None)
Quarter: 2004Q2

REPORT INFORMATION
  Report Type: 
  Country: None (occurrence: None)
  Receive Date: 20040602
  Receipt Date: 20040323
  Transmission Date: 20050107
  Serious: No
  Sender: FDA-Public Use
  Company Number: 200416492BWH

PATIENT
  Age: 73 Year
  Sex: Male
  Weight: 83.9154 kg

DRUGS (8)
  1. LEVITRA [Suspect]
     Indication: ORGANIC ERECTILE DYSFUNCTION
     Dosage: 10 MG PRN ORAL
     Route: 048
  2. LEVITRA [Suspect]
     Dosage: 20 MG PRN ORAL
     Route: 048
  3. ATACAND [Concomitant]
  4. TOPROL-XL [Concomitant]
  5. FOLIC ACID [Concomitant]
  6. ASPIRIN [Concomitant]
  7. PROTONIX [Concomitant]
  8. PEPCID AC [Concomitant]

REACTIONS (1)
  - DYSPEPSIA [None]
